FAERS Safety Report 6087670-X (Version None)
Quarter: 2009Q1

REPORT INFORMATION
  Report Type: 
  Country: None (occurrence: None)
  Receive Date: 20090223
  Receipt Date: 20090212
  Transmission Date: 20090719
  Serious: Yes (Hospitalization)
  Sender: FDA-Public Use
  Company Number: GB-TEVA-185716ISR

PATIENT

DRUGS (1)
  1. PREDNISOLONE [Suspect]

REACTIONS (1)
  - MELAENA [None]
